FAERS Safety Report 14480025 (Version 4)
Quarter: 2018Q2

REPORT INFORMATION
  Report Type: Spontaneous
  Country: US (occurrence: US)
  Receive Date: 20180202
  Receipt Date: 20180406
  Transmission Date: 20180711
  Serious: Yes (Life-Threatening, Hospitalization, Other)
  Sender: FDA-Public Use
  Company Number: US-AMGEN-USASP2018012355

PATIENT
  Age: 72 Year
  Sex: Male

DRUGS (11)
  1. ARANESP [Suspect]
     Active Substance: DARBEPOETIN ALFA
     Indication: NEPHROGENIC ANAEMIA
     Dosage: 100 MUG, UNK
     Route: 065
     Dates: start: 201703, end: 201703
  2. POTASSIUM [Concomitant]
     Active Substance: POTASSIUM
  3. DOXAZOSIN [Concomitant]
     Active Substance: DOXAZOSIN\DOXAZOSIN MESYLATE
  4. ARANESP [Suspect]
     Active Substance: DARBEPOETIN ALFA
     Dosage: UNK
     Route: 065
     Dates: start: 201802
  5. FAMOTIDINE. [Concomitant]
     Active Substance: FAMOTIDINE
  6. LACTOBACILLUS [Concomitant]
     Active Substance: LACTOBACILLUS ACIDOPHILUS
  7. IRON [Concomitant]
     Active Substance: IRON
  8. AMLODIPINE [Concomitant]
     Active Substance: AMLODIPINE BESYLATE
  9. LOSARTAN. [Concomitant]
     Active Substance: LOSARTAN
  10. FINASTERIDE. [Concomitant]
     Active Substance: FINASTERIDE
  11. LEVOTHYROXINE. [Concomitant]
     Active Substance: LEVOTHYROXINE

REACTIONS (5)
  - Blood pressure diastolic increased [Recovered/Resolved]
  - Anaemia [Unknown]
  - Electrocardiogram abnormal [Unknown]
  - Off label use [Unknown]
  - Hypotension [Unknown]

NARRATIVE: CASE EVENT DATE: 201702
